FAERS Safety Report 19973756 (Version 1)
Quarter: 2021Q4

REPORT INFORMATION
  Report Type: Spontaneous
  Country: US (occurrence: US)
  Receive Date: 20211020
  Receipt Date: 20211020
  Transmission Date: 20220304
  Serious: Yes (Hospitalization)
  Sender: FDA-Public Use
  Company Number: None

PATIENT
  Age: 54 Year
  Sex: Male
  Weight: 108 kg

DRUGS (1)
  1. CASIRIVIMAB [Suspect]
     Active Substance: CASIRIVIMAB
     Indication: COVID-19
     Route: 042
     Dates: start: 20211013, end: 20211013

REACTIONS (3)
  - Lethargy [None]
  - Syncope [None]
  - Dehydration [None]

NARRATIVE: CASE EVENT DATE: 20211014
